FAERS Safety Report 11247820 (Version 1)
Quarter: 2015Q2

REPORT INFORMATION
  Report Type: Spontaneous
  Country: US (occurrence: None)
  Receive Date: 20150617
  Receipt Date: 20150617
  Transmission Date: 20150821
  Serious: No
  Sender: FDA-Public Use
  Company Number: 2014TASUS000479

PATIENT
  Age: 64 Year
  Sex: Male
  Weight: 90.7 kg

DRUGS (6)
  1. ASPIRIN (ACETYLSALICYLIC ACID) [Concomitant]
     Active Substance: ASPIRIN
  2. METOPROLOL TARTRATE. [Concomitant]
     Active Substance: METOPROLOL TARTRATE
  3. AMLODIPINE (AMLODIPINE BESILATE) [Concomitant]
  4. CYMBALTA [Concomitant]
     Active Substance: DULOXETINE HYDROCHLORIDE
  5. GABAPENTIN. [Concomitant]
     Active Substance: GABAPENTIN
  6. HETLIOZ [Suspect]
     Active Substance: TASIMELTEON
     Indication: CIRCADIAN RHYTHM SLEEP DISORDER
     Dosage: QD AT 9PM
     Route: 048
     Dates: start: 20140801, end: 20140928

REACTIONS (5)
  - Flatulence [None]
  - Somnambulism [None]
  - Nightmare [None]
  - Abdominal distension [None]
  - Time perception altered [None]

NARRATIVE: CASE EVENT DATE: 2014
